FAERS Safety Report 11309806 (Version 1)
Quarter: 2015Q3

REPORT INFORMATION
  Report Type: Spontaneous
  Country: CH (occurrence: AU)
  Receive Date: 20150724
  Receipt Date: 20150724
  Transmission Date: 20151125
  Serious: Yes (Other)
  Sender: FDA-Public Use
  Company Number: CH-LPDUSPRD-20150568

PATIENT
  Sex: Female

DRUGS (1)
  1. FERINJECT [Suspect]
     Active Substance: FERRIC CARBOXYMALTOSE
     Dosage: 1000 MG
     Route: 041
     Dates: start: 20150709

REACTIONS (5)
  - Discomfort [Unknown]
  - Hypotension [Unknown]
  - Cold sweat [Unknown]
  - Syncope [Unknown]
  - Product quality issue [Unknown]

NARRATIVE: CASE EVENT DATE: 20150709
